FAERS Safety Report 16862925 (Version 1)
Quarter: 2019Q3

REPORT INFORMATION
  Report Type: Spontaneous
  Country: US (occurrence: US)
  Receive Date: 20190927
  Receipt Date: 20190927
  Transmission Date: 20191005
  Serious: Yes (Hospitalization, Other)
  Sender: FDA-Public Use
  Company Number: US-ENDO PHARMACEUTICALS INC-2019-108224

PATIENT
  Age: 33 Year
  Sex: Male

DRUGS (1)
  1. AVEED [Suspect]
     Active Substance: TESTOSTERONE UNDECANOATE
     Indication: BLOOD TESTOSTERONE DECREASED
     Dosage: 300 MG/ML, UNKNOWN
     Route: 065

REACTIONS (3)
  - Drug abuse [Unknown]
  - Superior sagittal sinus thrombosis [Recovering/Resolving]
  - Pneumonia aspiration [Unknown]
